FAERS Safety Report 25979354 (Version 1)
Quarter: 2025Q4

REPORT INFORMATION
  Report Type: Spontaneous
  Country: EU (occurrence: EU)
  Receive Date: 20251030
  Receipt Date: 20251030
  Transmission Date: 20260118
  Serious: Yes (Hospitalization)
  Sender: RANBAXY
  Company Number: None

PATIENT
  Age: 82 Year
  Sex: Female

DRUGS (1)
  1. ATORVASTATIN [Suspect]
     Active Substance: ATORVASTATIN
     Indication: Product used for unknown indication
     Dosage: 20 MILLIGRAM, DAILY
     Route: 065
     Dates: end: 202506

REACTIONS (3)
  - Escherichia urinary tract infection [Unknown]
  - Pulmonary embolism [Unknown]
  - Immune-mediated myositis [Recovering/Resolving]

NARRATIVE: CASE EVENT DATE: 20250101
